FAERS Safety Report 6878395-9 (Version None)
Quarter: 2010Q3

REPORT INFORMATION
  Report Type: 
  Country: None (occurrence: None)
  Receive Date: 20100728
  Receipt Date: 20100726
  Transmission Date: 20110219
  Serious: Yes (Death, Life-Threatening)
  Sender: FDA-Public Use
  Company Number: PK-ROXANE LABORATORIES, INC.-2010-RO-00906RO

PATIENT
  Sex: Male
  Weight: 1 kg

DRUGS (3)
  1. AZATHIOPRINE [Suspect]
     Indication: DRUG EXPOSURE DURING PREGNANCY
     Route: 064
  2. PREDNISOLONE [Suspect]
     Indication: DRUG EXPOSURE DURING PREGNANCY
     Route: 064
  3. PREDNISOLONE [Suspect]
     Route: 064

REACTIONS (2)
  - APLASIA CUTIS CONGENITA [None]
  - SEPSIS NEONATAL [None]
